FAERS Safety Report 13211008 (Version 1)
Quarter: 2017Q1

REPORT INFORMATION
  Report Type: Spontaneous
  Country: US (occurrence: US)
  Receive Date: 20170210
  Receipt Date: 20170210
  Transmission Date: 20170428
  Serious: Yes (Disabling)
  Sender: FDA-Public Use
  Company Number: None

PATIENT
  Age: 40 Year
  Sex: Female
  Weight: 69.75 kg

DRUGS (1)
  1. BUPROPION HCL 300 MG TABLET [Suspect]
     Active Substance: BUPROPION HYDROCHLORIDE
     Indication: DEPRESSION
     Dosage: ?          QUANTITY:1 TABLET(S);?
     Route: 048
     Dates: start: 20161101

REACTIONS (5)
  - Weight increased [None]
  - Vision blurred [None]
  - Headache [None]
  - Product substitution issue [None]
  - Epistaxis [None]

NARRATIVE: CASE EVENT DATE: 20161201
